FAERS Safety Report 24711153 (Version 1)
Quarter: 2024Q4

REPORT INFORMATION
  Report Type: Spontaneous
  Country: US (occurrence: None)
  Receive Date: 20241206
  Receipt Date: 20241206
  Transmission Date: 20250115
  Serious: No
  Sender: Public
  Company Number: None

PATIENT
  Sex: Female

DRUGS (9)
  1. OPSUMIT [Suspect]
     Active Substance: MACITENTAN
     Indication: Pulmonary arterial hypertension
     Dates: start: 201911
  2. NEXPLANON [Suspect]
     Active Substance: ETONOGESTREL
  3. OFEV [Suspect]
     Active Substance: NINTEDANIB
  4. REMODULIN [Suspect]
     Active Substance: TREPROSTINIL
  5. REMODULIN EMGCY PREMX (BRG) [Concomitant]
  6. C-TREPROSTINIL (2.5ml)RM [Concomitant]
  7. TADALAFIL [Concomitant]
     Active Substance: TADALAFIL
  8. OFEV [Concomitant]
     Active Substance: NINTEDANIB
  9. NEXPLANON [Concomitant]
     Active Substance: ETONOGESTREL

REACTIONS (4)
  - Nausea [None]
  - Vomiting [None]
  - Diarrhoea [None]
  - Abdominal pain upper [None]
